FAERS Safety Report 21346141 (Version 2)
Quarter: 2022Q3

REPORT INFORMATION
  Report Type: Spontaneous
  Country: US (occurrence: US)
  Receive Date: 20220917
  Receipt Date: 20220929
  Transmission Date: 20221027
  Serious: No
  Sender: FDA-Public Use
  Company Number: US-drreddys-LIT/USA/22/0154450

PATIENT
  Age: 18 Year
  Sex: Female

DRUGS (4)
  1. CINACALCET HYDROCHLORIDE [Suspect]
     Active Substance: CINACALCET HYDROCHLORIDE
     Indication: Hypercalcaemia
     Dosage: WITH UP TITRATION TO TWICE DAILY
  2. PAMIDRONATE DISODIUM [Suspect]
     Active Substance: PAMIDRONATE DISODIUM
     Indication: Hypercalcaemia
  3. CALCITONIN [Suspect]
     Active Substance: CALCITONIN
     Indication: Hypercalcaemia
  4. PREDNISONE [Suspect]
     Active Substance: PREDNISONE
     Indication: Hypercalcaemia

REACTIONS (4)
  - Hypocalcaemia [Unknown]
  - Normal newborn [Unknown]
  - Exposure during pregnancy [Unknown]
  - Drug ineffective [Unknown]
